FAERS Safety Report 16689450 (Version 1)
Quarter: 2019Q3

REPORT INFORMATION
  Report Type: Spontaneous
  Country: US (occurrence: US)
  Receive Date: 20190809
  Receipt Date: 20190809
  Transmission Date: 20191004
  Serious: No
  Sender: FDA-Public Use
  Company Number: US-PFIZER INC-2019339264

PATIENT
  Sex: Female

DRUGS (1)
  1. REVATIO [Suspect]
     Active Substance: SILDENAFIL CITRATE
     Indication: PULMONARY HYPERTENSION
     Dosage: UNK

REACTIONS (6)
  - Oxygen consumption increased [Unknown]
  - Dark circles under eyes [Unknown]
  - Decreased appetite [Unknown]
  - Hypersomnia [Unknown]
  - Skin discolouration [Unknown]
  - Gastric disorder [Unknown]
